FAERS Safety Report 5745608-6 (Version None)
Quarter: 2008Q2

REPORT INFORMATION
  Report Type: 
  Country: None (occurrence: None)
  Receive Date: 20080521
  Receipt Date: 20080512
  Transmission Date: 20081010
  Serious: Yes (Other)
  Sender: FDA-Public Use
  Company Number: US-PFIZER INC-2007068298

PATIENT
  Sex: Female

DRUGS (7)
  1. DILANTIN [Suspect]
     Indication: CONVULSION
     Dosage: DAILY DOSE:50MG
  2. LIPITOR [Suspect]
     Indication: BLOOD CHOLESTEROL INCREASED
     Dosage: DAILY DOSE:10MG
  3. DILANTIN [Suspect]
  4. CALCIUM [Concomitant]
  5. FOSAMAX [Concomitant]
  6. PHENOBARBITAL TAB [Concomitant]
  7. NASONEX [Concomitant]

REACTIONS (7)
  - GALLBLADDER OPERATION [None]
  - GINGIVAL HYPERPLASIA [None]
  - GLAUCOMA [None]
  - INTERVERTEBRAL DISC DISORDER [None]
  - SURGERY [None]
  - WEIGHT DECREASED [None]
  - WRIST FRACTURE [None]
